FAERS Safety Report 7604371-4 (Version None)
Quarter: 2011Q3

REPORT INFORMATION
  Report Type: 
  Country: None (occurrence: None)
  Receive Date: 20110712
  Receipt Date: 20110630
  Transmission Date: 20111222
  Serious: Yes (Other)
  Sender: FDA-Public Use
  Company Number: PHHY2010US66698

PATIENT
  Sex: Female
  Weight: 44.535 kg

DRUGS (1)
  1. RECLAST [Suspect]
     Dosage: 5 MG, UNK
     Route: 042

REACTIONS (6)
  - CONTUSION [None]
  - SPINAL COLUMN INJURY [None]
  - PAIN [None]
  - FALL [None]
  - PELVIC FRACTURE [None]
  - DRUG INEFFECTIVE [None]
